FAERS Safety Report 7001503-6 (Version None)
Quarter: 2010Q3

REPORT INFORMATION
  Report Type: 
  Country: None (occurrence: None)
  Receive Date: 20100920
  Receipt Date: 20100914
  Transmission Date: 20110219
  Serious: Yes (Hospitalization)
  Sender: FDA-Public Use
  Company Number: US-ROCHE-727275

PATIENT
  Age: 83 Year
  Sex: Male
  Weight: 66.2 kg

DRUGS (11)
  1. BEVACIZUMAB [Suspect]
     Indication: LUNG ADENOCARCINOMA
     Dosage: LAST DOSE PRIOR SAE: 26 AUGUST 2010
     Route: 042
     Dates: start: 20100108
  2. ERLOTINIB HYDROCHLORIDE [Suspect]
     Indication: LUNG ADENOCARCINOMA
     Route: 065
     Dates: end: 20100624
  3. CARDURA [Suspect]
     Route: 065
  4. LEXAPRO [Suspect]
     Route: 065
  5. DULCOLAX [Suspect]
     Route: 065
  6. IBUPROFEN [Suspect]
     Route: 065
  7. NOVOLOG [Suspect]
     Dosage: REPORTED AS NOVALOG
     Route: 065
  8. SALMETEROL [Suspect]
     Route: 065
  9. SIMVASTATIN [Suspect]
     Route: 065
  10. TYLENOL [Suspect]
     Route: 065
  11. ZOFRAN [Suspect]
     Route: 065

REACTIONS (1)
  - SPEECH DISORDER [None]
